FAERS Safety Report 6654038-4 (Version None)
Quarter: 2010Q1

REPORT INFORMATION
  Report Type: 
  Country: None (occurrence: None)
  Receive Date: 20100326
  Receipt Date: 20100315
  Transmission Date: 20100710
  Serious: Yes (Hospitalization, Disabling, Other)
  Sender: FDA-Public Use
  Company Number: US-ELI_LILLY_AND_COMPANY-US200911002225

PATIENT
  Sex: Female

DRUGS (8)
  1. EVISTA [Suspect]
     Indication: OSTEOPOROSIS
     Dosage: 60 MG, DAILY (1/D)
     Route: 065
     Dates: start: 20000109, end: 20040101
  2. EVISTA [Suspect]
     Dosage: 50 MG, DAILY (1/D)
  3. CALCIUM [Concomitant]
     Dosage: UNK, UNKNOWN
     Route: 065
  4. VITAMINS [Concomitant]
     Dosage: UNK, UNKNOWN
     Route: 065
  5. PREVACID [Concomitant]
     Dosage: 30 MG, DAILY (1/D)
  6. VITAMIN E /00110501/ [Concomitant]
     Dosage: 400 IU, DAILY (1/D)
  7. VITAMIN C [Concomitant]
     Dosage: 500 MG, DAILY (1/D)
  8. PROTONIX /01263201/ [Concomitant]
     Dosage: 40 MG, DAILY (1/D)
     Dates: start: 20040101

REACTIONS (39)
  - ANGINA PECTORIS [None]
  - ANGINA UNSTABLE [None]
  - AORTIC STENOSIS [None]
  - AORTIC VALVE INCOMPETENCE [None]
  - AORTIC VALVE SCLEROSIS [None]
  - APHASIA [None]
  - ASPIRATION [None]
  - ASTHENIA [None]
  - ATRIAL FIBRILLATION [None]
  - ATRIAL SEPTAL DEFECT [None]
  - CARDIAC MURMUR [None]
  - CARDIAC VALVE DISEASE [None]
  - CARDIOMYOPATHY [None]
  - CEREBROVASCULAR ACCIDENT [None]
  - COGNITIVE DISORDER [None]
  - CONSTIPATION [None]
  - DEPRESSION [None]
  - DIARRHOEA [None]
  - DILATATION ATRIAL [None]
  - DIZZINESS POSTURAL [None]
  - DYSPEPSIA [None]
  - DYSPNOEA EXERTIONAL [None]
  - ELECTROCARDIOGRAM ABNORMAL [None]
  - EMOTIONAL DISORDER [None]
  - EXERCISE TOLERANCE DECREASED [None]
  - GAIT DISTURBANCE [None]
  - HYPERTENSIVE HEART DISEASE [None]
  - HYPOTENSION [None]
  - IMPAIRED DRIVING ABILITY [None]
  - INTERNATIONAL NORMALISED RATIO DECREASED [None]
  - LABILE HYPERTENSION [None]
  - LEFT VENTRICULAR HYPERTROPHY [None]
  - MENTAL IMPAIRMENT [None]
  - MITRAL VALVE INCOMPETENCE [None]
  - MYOCARDIAL ISCHAEMIA [None]
  - SINUS BRADYCARDIA [None]
  - STRESS [None]
  - THROMBOSIS [None]
  - TRICUSPID VALVE INCOMPETENCE [None]
